FAERS Safety Report 21353178 (Version 4)
Quarter: 2025Q2

REPORT INFORMATION
  Report Type: Spontaneous
  Country: US (occurrence: US)
  Receive Date: 20220920
  Receipt Date: 20250519
  Transmission Date: 20250716
  Serious: Yes (Other)
  Sender: RANBAXY
  Company Number: US-SUN PHARMACEUTICAL INDUSTRIES LTD-2022R1-348361

PATIENT
  Sex: Female

DRUGS (1)
  1. WINLEVI [Suspect]
     Active Substance: CLASCOTERONE
     Indication: Product used for unknown indication
     Route: 061

REACTIONS (5)
  - Skin burning sensation [Unknown]
  - Condition aggravated [Unknown]
  - Product dose omission issue [Unknown]
  - Product physical consistency issue [Unknown]
  - Product use complaint [Unknown]
